FAERS Safety Report 7109916-9 (Version None)
Quarter: 2010Q4

REPORT INFORMATION
  Report Type: 
  Country: None (occurrence: None)
  Receive Date: 20101118
  Receipt Date: 20101108
  Transmission Date: 20110411
  Serious: Yes (Death)
  Sender: FDA-Public Use
  Company Number: US-JNJFOC-20091203534

PATIENT
  Sex: Male

DRUGS (14)
  1. DURAGESIC-100 [Suspect]
     Indication: NEUROPATHY PERIPHERAL
     Route: 062
  2. DURAGESIC-100 [Suspect]
     Indication: PAIN
     Route: 062
  3. GLIPIZIDE [Concomitant]
  4. METFORMIN [Concomitant]
  5. SIMVASTATIN [Concomitant]
  6. LISINOPRIL [Concomitant]
  7. PIROXICAM [Concomitant]
  8. TRIHEXYPHENIDYL HCL [Concomitant]
  9. DIAZEPAM [Concomitant]
  10. ZYPREXA [Concomitant]
  11. CITALOPRAM HYDROBROMIDE [Concomitant]
  12. TEGRETOL [Concomitant]
  13. EPIPEN [Concomitant]
  14. OXYCODONE HCL [Concomitant]

REACTIONS (5)
  - DRUG INEFFECTIVE [None]
  - DRUG TOXICITY [None]
  - PRODUCT ADHESION ISSUE [None]
  - SEDATION [None]
  - WRONG TECHNIQUE IN DRUG USAGE PROCESS [None]
